FAERS Safety Report 17849980 (Version 1)
Quarter: 2020Q2

REPORT INFORMATION
  Report Type: Spontaneous
  Country: ES (occurrence: ES)
  Receive Date: 20200602
  Receipt Date: 20200602
  Transmission Date: 20200714
  Serious: Yes (Other)
  Sender: FDA-Public Use
  Company Number: NVSC2020ES151953

PATIENT
  Sex: Female

DRUGS (1)
  1. REVOLADE [Suspect]
     Active Substance: ELTROMBOPAG
     Indication: BONE MARROW FAILURE
     Dosage: 50 MG
     Route: 048

REACTIONS (9)
  - Platelet count increased [Unknown]
  - Pain [Recovering/Resolving]
  - Respiratory disorder [Unknown]
  - Hypersensitivity [Unknown]
  - Epistaxis [Unknown]
  - Insomnia [Unknown]
  - Scar [Recovering/Resolving]
  - Arthralgia [Not Recovered/Not Resolved]
  - Discomfort [Unknown]
